FAERS Safety Report 19660579 (Version 2)
Quarter: 2021Q3

REPORT INFORMATION
  Report Type: Spontaneous
  Country: JP (occurrence: JP)
  Receive Date: 20210805
  Receipt Date: 20210922
  Transmission Date: 20211014
  Serious: Yes (Death, Hospitalization)
  Sender: FDA-Public Use
  Company Number: JP-JNJFOC-20210765415

PATIENT
  Age: 27 Year
  Sex: Female
  Weight: 38 kg

DRUGS (2)
  1. ASPRIN [Suspect]
     Active Substance: ASPIRIN
     Indication: PRODUCT USED FOR UNKNOWN INDICATION
     Route: 065
  2. OPSUMIT [Suspect]
     Active Substance: MACITENTAN
     Indication: CORRECTED TRANSPOSITION OF GREAT VESSELS
     Dosage: DOSE UNKNOWN
     Route: 048

REACTIONS (3)
  - Pulmonary haemorrhage [Fatal]
  - Product use in unapproved indication [Unknown]
  - Off label use [Unknown]

NARRATIVE: CASE EVENT DATE: 20200121
